FAERS Safety Report 10412541 (Version 1)
Quarter: 2014Q2

REPORT INFORMATION
  Report Type: Spontaneous
  Country: US (occurrence: None)
  Receive Date: 20140604
  Receipt Date: 20140604
  Transmission Date: 20141212
  Serious: Yes (Other)
  Sender: FDA-Public Use
  Company Number: 163-POMAL-14022657

PATIENT
  Age: 67 Year
  Sex: Male
  Weight: 72.6 kg

DRUGS (16)
  1. POMALYST (POMALIDOMIDE) (3 MILLIGRAM, CAPSULES) [Suspect]
     Indication: PLASMA CELL MYELOMA
     Dosage: 3 MG, 14 IN 14 D
     Route: 048
     Dates: start: 201401
  2. VITAMIN B COMPLEX (B-KOMPLEX ^LECIVA^) [Concomitant]
  3. PRILOSEC (OMEPRAZOLE) [Concomitant]
  4. VITAMIN D 3 (COLECALCIFEROL) [Concomitant]
  5. MUCINEX MAXIMUM STRENGTH (GUAIFENESIN) [Concomitant]
  6. VESICARE (SOLIFENACIN SUCCINATE) [Concomitant]
  7. TYLENOL (PARACETAMOL) [Concomitant]
  8. CHOLESTYRAMINE (COLESTYRAMINE) [Concomitant]
  9. KLOR-CON 10 (POTASSIUM CHLORIDE) [Concomitant]
  10. IMODIUM A-D (LOPERAMIDE HYDROCHLORIDE) [Concomitant]
  11. CULTURELLE [Concomitant]
  12. CITALOPRAM HYDROBROMIDE [Concomitant]
  13. ACYCLOVIR (ACICLOVIR) (ACICLOVIR) [Concomitant]
  14. LYRICA (PREGABALIN) [Concomitant]
  15. FENTANYL [Concomitant]
  16. VICODIN [Concomitant]

REACTIONS (1)
  - Deep vein thrombosis [None]
